FAERS Safety Report 8791724 (Version 6)
Quarter: 2013Q2

REPORT INFORMATION
  Report Type: Report from Study
  Country: US (occurrence: US)
  Receive Date: 20120918
  Receipt Date: 20130625
  Transmission Date: 20140414
  Serious: Yes (Hospitalization)
  Sender: FDA-Public Use
  Company Number: US-JNJFOC-20120906204

PATIENT
  Age: 15 Year
  Sex: Female
  Weight: 46.5 kg

DRUGS (5)
  1. REMICADE [Suspect]
     Indication: CROHN^S DISEASE
     Route: 042
     Dates: start: 20110216
  2. SERTRALINE [Concomitant]
     Route: 065
  3. ESOMEPRAZOLE [Concomitant]
     Route: 065
  4. LAMICTAL [Concomitant]
     Route: 065
  5. RISPERIDOL [Concomitant]
     Route: 065

REACTIONS (1)
  - Bipolar disorder [Not Recovered/Not Resolved]
